FAERS Safety Report 20470789 (Version 1)
Quarter: 2022Q1

REPORT INFORMATION
  Report Type: Spontaneous
  Country: US (occurrence: US)
  Receive Date: 20220214
  Receipt Date: 20220214
  Transmission Date: 20220423
  Serious: No
  Sender: FDA-Public Use
  Company Number: US-KALA PHARAMACEUTICALS-2021KLA00108

PATIENT
  Sex: Female

DRUGS (3)
  1. EYSUVIS [Suspect]
     Active Substance: LOTEPREDNOL ETABONATE
     Indication: Eye inflammation
     Dosage: UNK
     Route: 047
     Dates: start: 202110
  2. EYSUVIS [Suspect]
     Active Substance: LOTEPREDNOL ETABONATE
     Indication: Dry eye
  3. PRESERVATIVE FREE EYE LUBRICANT [Concomitant]
     Route: 047

REACTIONS (4)
  - Drug ineffective [Not Recovered/Not Resolved]
  - Exposure via skin contact [Recovered/Resolved]
  - Product dose omission issue [Unknown]
  - Product packaging issue [Unknown]

NARRATIVE: CASE EVENT DATE: 20211001
